FAERS Safety Report 9393753 (Version 3)
Quarter: 2013Q3

REPORT INFORMATION
  Report Type: Spontaneous
  Country: JP (occurrence: JP)
  Receive Date: 20130710
  Receipt Date: 20130919
  Transmission Date: 20140515
  Serious: No
  Sender: FDA-Public Use
  Company Number: JP-B.I. PHARMACEUTICALS,INC./RIDGEFIELD-2013-BI-19704NB

PATIENT
  Age: 86 Year
  Sex: Female
  Weight: 60 kg

DRUGS (5)
  1. TRAZENTA [Suspect]
     Dosage: 5 MG
     Route: 065
     Dates: start: 20130513
  2. TAKEPRON [Concomitant]
     Route: 065
  3. PREMINENT [Concomitant]
     Route: 065
  4. RECALBON [Concomitant]
     Route: 065
  5. JUVELA NICOTINATE [Concomitant]
     Route: 065

REACTIONS (2)
  - Urticaria [Recovered/Resolved]
  - Somnolence [Recovered/Resolved]
